FAERS Safety Report 5760194-2 (Version None)
Quarter: 2008Q2

REPORT INFORMATION
  Report Type: 
  Country: None (occurrence: None)
  Receive Date: 20080605
  Receipt Date: 20080529
  Transmission Date: 20081010
  Serious: Yes (Other)
  Sender: FDA-Public Use
  Company Number: GR-ABBOTT-08P-066-0451718-00

PATIENT
  Age: 55 Year
  Sex: Female
  Weight: 90 kg

DRUGS (2)
  1. HUMIRA [Suspect]
     Indication: PSORIASIS
     Dates: start: 20080301
  2. CORTICOSTEROIDS [Concomitant]
     Indication: PSORIASIS
     Route: 061

REACTIONS (1)
  - RASH MACULO-PAPULAR [None]
